FAERS Safety Report 19297257 (Version 1)
Quarter: 2021Q2

REPORT INFORMATION
  Report Type: Spontaneous
  Country: US (occurrence: US)
  Receive Date: 20210524
  Receipt Date: 20210524
  Transmission Date: 20210717
  Serious: Yes (Death, Other)
  Sender: FDA-Public Use
  Company Number: US-UCBSA-2021023773

PATIENT
  Age: 57 Year
  Sex: Male

DRUGS (1)
  1. LACOSAMIDE. [Suspect]
     Active Substance: LACOSAMIDE
     Indication: STATUS EPILEPTICUS
     Dosage: OVERDOSE

REACTIONS (4)
  - Product use in unapproved indication [Unknown]
  - Electrocardiogram ST segment elevation [Not Recovered/Not Resolved]
  - Overdose [Unknown]
  - Pulseless electrical activity [Fatal]
